FAERS Safety Report 10056697 (Version 3)
Quarter: 2014Q2

REPORT INFORMATION
  Report Type: Spontaneous
  Country: GB (occurrence: GB)
  Receive Date: 20140403
  Receipt Date: 20140418
  Transmission Date: 20141212
  Serious: Yes (Hospitalization)
  Sender: FDA-Public Use
  Company Number: PHFR2014GB002581

PATIENT
  Age: 74 Year
  Sex: Male

DRUGS (5)
  1. CLOZARIL [Suspect]
     Indication: SCHIZOPHRENIA
     Dosage: UNK
     Route: 048
     Dates: start: 20010410
  2. CLOZARIL [Suspect]
     Dosage: 100 MG, DAILY
     Route: 048
  3. CLOZARIL [Suspect]
     Dosage: 25 MG, BID
     Route: 048
  4. SODIUM VALPROATE [Concomitant]
     Indication: MOOD SWINGS
     Dosage: 1000 MG, DAILY
     Route: 048
  5. SODIUM VALPROATE [Concomitant]
     Indication: CONVULSION

REACTIONS (2)
  - Cerebrovascular accident [Unknown]
  - Convulsion [Recovering/Resolving]
